FAERS Safety Report 6659520-1 (Version None)
Quarter: 2010Q1

REPORT INFORMATION
  Report Type: 
  Country: None (occurrence: None)
  Receive Date: 20100330
  Receipt Date: 20100313
  Transmission Date: 20100710
  Serious: Yes (Hospitalization)
  Sender: FDA-Public Use
  Company Number: US-JNJFOC-20090600795

PATIENT
  Sex: Female

DRUGS (1)
  1. LEVAQUIN [Suspect]
     Indication: SINUSITIS
     Route: 048

REACTIONS (5)
  - ABDOMINAL DISCOMFORT [None]
  - ABDOMINAL PAIN [None]
  - MALLORY-WEISS SYNDROME [None]
  - NAUSEA [None]
  - VOMITING [None]
